FAERS Safety Report 9798544 (Version 1)
Quarter: 2014Q1

REPORT INFORMATION
  Report Type: Spontaneous
  Country: US (occurrence: US)
  Receive Date: 20140106
  Receipt Date: 20140106
  Transmission Date: 20141002
  Serious: Yes (Hospitalization)
  Sender: FDA-Public Use
  Company Number: US-BAYER-2014-001578

PATIENT
  Age: 40 Year
  Sex: Female

DRUGS (15)
  1. YASMIN [Suspect]
     Indication: MENSTRUATION IRREGULAR
     Dosage: UNK
  2. YAZ [Suspect]
     Dosage: UNK
  3. ZOLOFT [Concomitant]
     Dosage: 50 MG, UNK
     Route: 048
     Dates: start: 20051116
  4. WELLBUTRIN [Concomitant]
     Dosage: 150 MG, UNK
     Route: 048
     Dates: start: 20051116
  5. VYTORIN [Concomitant]
     Indication: BLOOD CHOLESTEROL INCREASED
     Dosage: UNK
     Route: 048
     Dates: start: 20051116
  6. CENTRUM [Concomitant]
     Dosage: UNK
     Route: 048
     Dates: start: 20051116
  7. FISH OIL [Concomitant]
     Dosage: UNK
     Route: 048
     Dates: start: 20051116
  8. LORTAB [Concomitant]
     Indication: PAIN
     Dosage: UNK
     Route: 048
     Dates: start: 20060101
  9. IBUPROFEN [Concomitant]
     Indication: PAIN
     Dosage: 800 MG, THREE TIMES PER DAY
     Route: 048
     Dates: start: 20060104
  10. ZITHROMAX [Concomitant]
     Indication: COUGH
     Dosage: UNK
     Route: 048
  11. ZITHROMAX [Concomitant]
     Indication: NASOPHARYNGITIS
  12. ZITHROMAX [Concomitant]
     Indication: SINUSITIS
  13. AUGMENTIN [Concomitant]
     Indication: COUGH
     Dosage: UNK
     Route: 048
  14. AUGMENTIN [Concomitant]
     Indication: NASOPHARYNGITIS
  15. AUGMENTIN [Concomitant]
     Indication: SINUSITIS

REACTIONS (1)
  - Pulmonary embolism [Recovering/Resolving]
